FAERS Safety Report 5147705-5 (Version None)
Quarter: 2006Q3

REPORT INFORMATION
  Report Type: 
  Country: None (occurrence: None)
  Receive Date: 20060915
  Receipt Date: 20060727
  Transmission Date: 20061208
  Serious: No
  Sender: FDA-Public Use
  Company Number: 2006RL000276

PATIENT
  Age: 64 Year
  Sex: Female

DRUGS (2)
  1. OMACOR [Suspect]
     Indication: DRUG USE FOR UNKNOWN INDICATION
     Dosage: 4 GM;QD;PO
     Route: 048
     Dates: start: 20060101, end: 20060701
  2. AMARYL [Concomitant]

REACTIONS (1)
  - HYPERGLYCAEMIA [None]
